FAERS Safety Report 7869092-1 (Version None)
Quarter: 2011Q4

REPORT INFORMATION
  Report Type: 
  Country: None (occurrence: None)
  Receive Date: 20111021
  Receipt Date: 20111013
  Transmission Date: 20120403
  Serious: Yes (Hospitalization)
  Sender: FDA-Public Use
  Company Number: 2011SP005927

PATIENT
  Age: 33 Year
  Sex: Female
  Weight: 70.3075 kg

DRUGS (3)
  1. NUVARING [Suspect]
     Indication: MENOPAUSE
     Dates: start: 20020101, end: 20030101
  2. NUVARING [Suspect]
     Indication: MENOPAUSE
     Dates: start: 20080101, end: 20090301
  3. SYNTHROID [Concomitant]

REACTIONS (11)
  - OVARIAN CYST [None]
  - MENORRHAGIA [None]
  - METRORRHAGIA [None]
  - NAUSEA [None]
  - UTERINE LEIOMYOMA [None]
  - BREAST DISCHARGE [None]
  - MUSCULOSKELETAL PAIN [None]
  - MUSCLE SPASMS [None]
  - DEEP VEIN THROMBOSIS [None]
  - NECK PAIN [None]
  - TEMPERATURE INTOLERANCE [None]
